FAERS Safety Report 18207871 (Version 1)
Quarter: 2020Q3

REPORT INFORMATION
  Report Type: Report from Study
  Country: None (occurrence: CA)
  Receive Date: 20200828
  Receipt Date: 20200828
  Transmission Date: 20201103
  Serious: Yes (Other)
  Sender: FDA-Public Use
  Company Number: CA-ABBVIE-20K-028-3541652-00

PATIENT
  Sex: Female

DRUGS (1)
  1. HUMIRA [Suspect]
     Active Substance: ADALIMUMAB
     Indication: RHEUMATOID ARTHRITIS
     Route: 058
     Dates: start: 20101103

REACTIONS (12)
  - Dizziness [Recovered/Resolved]
  - Rib fracture [Unknown]
  - Head injury [Recovered/Resolved]
  - Syncope [Recovered/Resolved]
  - Arthropathy [Not Recovered/Not Resolved]
  - Joint injury [Recovered/Resolved]
  - Cataract [Not Recovered/Not Resolved]
  - Arthritis [Unknown]
  - Ligament rupture [Not Recovered/Not Resolved]
  - Vomiting [Recovered/Resolved]
  - Fall [Recovered/Resolved]
  - Fall [Recovered/Resolved]

NARRATIVE: CASE EVENT DATE: 2017
